FAERS Safety Report 15857377 (Version 1)
Quarter: 2019Q1

REPORT INFORMATION
  Report Type: Report from Study
  Country: CO (occurrence: CO)
  Receive Date: 20190123
  Receipt Date: 20190123
  Transmission Date: 20190417
  Serious: Yes (Death, Hospitalization)
  Sender: FDA-Public Use
  Company Number: CO-SAKK-2019SA016558AA

PATIENT
  Age: 54 Year
  Sex: Female

DRUGS (2)
  1. INSULIN GLULISINE [Suspect]
     Active Substance: INSULIN GLULISINE
     Indication: TYPE 2 DIABETES MELLITUS
     Dosage: 36 IU, TID
     Route: 058
     Dates: start: 201801, end: 20181218
  2. INSULIN GLARGINE [Suspect]
     Active Substance: INSULIN GLARGINE
     Indication: TYPE 2 DIABETES MELLITUS
     Dosage: 30 IU, QD
     Route: 058
     Dates: start: 201801, end: 20181218

REACTIONS (7)
  - Peritonitis [Fatal]
  - Diabetic coma [Fatal]
  - Cardio-respiratory arrest [Fatal]
  - Hypoglycaemia [Fatal]
  - Vomiting [Fatal]
  - Abdominal pain [Fatal]
  - Asthenia [Fatal]

NARRATIVE: CASE EVENT DATE: 20181217
